FAERS Safety Report 4370471-8 (Version None)
Quarter: 2004Q2

REPORT INFORMATION
  Report Type: 
  Country: None (occurrence: None)
  Receive Date: 20040603
  Receipt Date: 20040204
  Transmission Date: 20050107
  Serious: Yes (Hospitalization)
  Sender: FDA-Public Use
  Company Number: US-BRISTOL-MYERS SQUIBB COMPANY-12495552

PATIENT
  Age: 5 Decade
  Sex: Female

DRUGS (3)
  1. ABILIFY [Suspect]
     Indication: SCHIZOPHRENIA
     Route: 048
     Dates: start: 20031223, end: 20040123
  2. INSULIN [Concomitant]
     Indication: DIABETES MELLITUS
  3. LEXAPRO [Concomitant]

REACTIONS (1)
  - DYSTONIA [None]
